FAERS Safety Report 7041680-4 (Version None)
Quarter: 2010Q4

REPORT INFORMATION
  Report Type: 
  Country: None (occurrence: None)
  Receive Date: 20101013
  Receipt Date: 20101001
  Transmission Date: 20110411
  Serious: Yes (Hospitalization)
  Sender: FDA-Public Use
  Company Number: US-ROCHE-731940

PATIENT
  Sex: Female
  Weight: 64 kg

DRUGS (7)
  1. CAPECITABINE [Suspect]
     Indication: BREAST CANCER
     Dosage: UNK
     Route: 048
  2. TRASTUZUMAB-MCC-DM1 [Suspect]
     Indication: BREAST CANCER
     Dosage: 230.4 UNK, Q3W
     Route: 042
     Dates: start: 20100614
  3. LAPATINIB [Suspect]
     Indication: BREAST CANCER
     Dosage: UNK
     Route: 048
  4. DILAUDID [Concomitant]
     Indication: PRODUCT USED FOR UNKNOWN INDICATION
     Dosage: 4 MG, UNK
  5. MARINOL [Concomitant]
     Indication: PRODUCT USED FOR UNKNOWN INDICATION
  6. METHADONE [Concomitant]
     Indication: PRODUCT USED FOR UNKNOWN INDICATION
     Dosage: 4 MG, BID
  7. ZOFRAN [Concomitant]
     Indication: PRODUCT USED FOR UNKNOWN INDICATION
     Dosage: 4 MG, PRN

REACTIONS (1)
  - NAUSEA [None]
